FAERS Safety Report 5569055-5 (Version None)
Quarter: 2007Q4

REPORT INFORMATION
  Report Type: 
  Country: None (occurrence: None)
  Receive Date: 20071220
  Receipt Date: 20070607
  Transmission Date: 20080405
  Serious: No
  Sender: FDA-Public Use
  Company Number: A0654597A

PATIENT
  Age: 80 Year
  Sex: Female

DRUGS (7)
  1. AVODART [Suspect]
     Indication: BENIGN PROSTATIC HYPERPLASIA
     Dosage: .5MG PER DAY
     Route: 048
  2. EMBOLEX [Concomitant]
  3. DARVOCET [Concomitant]
  4. CATAFLAM [Concomitant]
  5. XANAX [Concomitant]
  6. BENADRYL [Concomitant]
  7. ASPIRIN [Concomitant]

REACTIONS (1)
  - HAIR GROWTH ABNORMAL [None]
